FAERS Safety Report 23617216 (Version 1)
Quarter: 2024Q1

REPORT INFORMATION
  Report Type: Spontaneous
  Country: US (occurrence: None)
  Receive Date: 20240309
  Receipt Date: 20240309
  Transmission Date: 20240410
  Serious: Yes (Other)
  Sender: FDA-Public Use
  Company Number: None

PATIENT
  Age: 72 Year
  Sex: Female
  Weight: 63 kg

DRUGS (4)
  1. OZEMPIC [Suspect]
     Active Substance: SEMAGLUTIDE
     Indication: Diabetes mellitus
     Dosage: OTHER QUANTITY : 1 INJECTION(S);?OTHER FREQUENCY : WEEKLY;?
     Route: 058
     Dates: start: 20230727, end: 20240125
  2. GLIPIZIDE [Concomitant]
     Active Substance: GLIPIZIDE
  3. Macular health [Concomitant]
  4. VITAMINS [Concomitant]
     Active Substance: VITAMINS

REACTIONS (5)
  - Lip disorder [None]
  - Nasal disorder [None]
  - Feeling abnormal [None]
  - Eye swelling [None]
  - Therapy interrupted [None]

NARRATIVE: CASE EVENT DATE: 20240104
